FAERS Safety Report 4406024-2 (Version None)
Quarter: 2004Q3

REPORT INFORMATION
  Report Type: 
  Country: None (occurrence: None)
  Receive Date: 20040723
  Receipt Date: 20040322
  Transmission Date: 20050211
  Serious: No
  Sender: FDA-Public Use
  Company Number: US-GLAXOSMITHKLINE-A0503865A

PATIENT
  Sex: Female

DRUGS (8)
  1. AVANDIA [Suspect]
     Dosage: 8MG PER DAY
     Route: 048
     Dates: start: 20030701
  2. INSULIN [Concomitant]
  3. LANTUS [Concomitant]
  4. ACCURETIC [Concomitant]
  5. ESTRADIOL [Concomitant]
  6. LASIX [Concomitant]
  7. FOLIC ACID [Concomitant]
  8. TRICOR [Concomitant]

REACTIONS (1)
  - SWELLING [None]
